FAERS Safety Report 10676065 (Version 4)
Quarter: 2015Q1

REPORT INFORMATION
  Report Type: Report from Study
  Country: PL (occurrence: PL)
  Receive Date: 20141225
  Receipt Date: 20150226
  Transmission Date: 20150720
  Serious: Yes (Hospitalization, Disabling)
  Sender: FDA-Public Use
  Company Number: PL-ROCHE-1514185

PATIENT
  Age: 82 Year
  Sex: Male
  Weight: 83.99 kg

DRUGS (10)
  1. RANIBIZUMAB [Suspect]
     Active Substance: RANIBIZUMAB
     Indication: AGE-RELATED MACULAR DEGENERATION
     Route: 050
     Dates: start: 20140303
  2. RANIBIZUMAB [Suspect]
     Active Substance: RANIBIZUMAB
     Dosage: LAST DOSE PRIOR TO SAE: 22/SEP/2014
     Route: 050
     Dates: start: 20140922, end: 20140922
  3. POLPRIL [Concomitant]
     Active Substance: RAMIPRIL
  4. SPIRONOL [Concomitant]
     Active Substance: SPIRONOLACTONE
  5. NEBILET [Concomitant]
     Active Substance: NEBIVOLOL
  6. FUROSEMIDE. [Concomitant]
     Active Substance: FUROSEMIDE
  7. ATORIS [Concomitant]
     Active Substance: ATORVASTATIN CALCIUM
  8. ACARD [Concomitant]
     Active Substance: ASPIRIN
  9. POLPRAZOL [Concomitant]
     Active Substance: OMEPRAZOLE
  10. EUPHYLIN [Concomitant]

REACTIONS (5)
  - Chronic obstructive pulmonary disease [Recovered/Resolved]
  - Ischaemic stroke [Not Recovered/Not Resolved]
  - Pneumonia [Recovered/Resolved]
  - Cerebrovascular accident [Recovered/Resolved]
  - General physical health deterioration [Unknown]

NARRATIVE: CASE EVENT DATE: 20140927
